FAERS Safety Report 4400827-6 (Version None)
Quarter: 2004Q3

REPORT INFORMATION
  Report Type: 
  Country: None (occurrence: None)
  Receive Date: 20040907
  Receipt Date: 20030625
  Transmission Date: 20050211
  Serious: No
  Sender: FDA-Public Use
  Company Number: US-BRISTOL-MYERS SQUIBB COMPANY-12310249

PATIENT
  Age: 60 Year
  Sex: Female
  Weight: 63 kg

DRUGS (8)
  1. COUMADIN [Suspect]
     Indication: ATRIAL FIBRILLATION
     Dosage: DOSAGE: 2.5MG DAILY TUES AND SAT.   5MG DAILY MON, WED, THUR, FRI, SUN.
     Route: 048
     Dates: start: 20030211
  2. LASIX [Concomitant]
  3. CARDIZEM [Concomitant]
  4. DIGITEK [Concomitant]
  5. POTASSIUM [Concomitant]
  6. CALCIUM [Concomitant]
  7. MAGNESIUM [Concomitant]
  8. MULTI-VITAMINS [Concomitant]

REACTIONS (1)
  - ALOPECIA [None]
